FAERS Safety Report 7532550-3 (Version None)
Quarter: 2011Q2

REPORT INFORMATION
  Report Type: 
  Country: None (occurrence: None)
  Receive Date: 20110608
  Receipt Date: 20110527
  Transmission Date: 20111010
  Serious: Yes (Other)
  Sender: FDA-Public Use
  Company Number: PHHY2011DE46188

PATIENT
  Age: 80 Year
  Sex: Female

DRUGS (1)
  1. EXELON [Suspect]
     Dosage: 9.5 MG/ 24 HRS
     Route: 062
     Dates: start: 20110501

REACTIONS (3)
  - NECK INJURY [None]
  - PARAPLEGIA [None]
  - FALL [None]
